FAERS Safety Report 7818388-8 (Version None)
Quarter: 2011Q4

REPORT INFORMATION
  Report Type: 
  Country: None (occurrence: None)
  Receive Date: 20111017
  Receipt Date: 20111010
  Transmission Date: 20120403
  Serious: Yes (Other)
  Sender: FDA-Public Use
  Company Number: US-AMGEN-USASP2011052333

PATIENT
  Age: 67 Year
  Sex: Female

DRUGS (3)
  1. ARAVA [Concomitant]
     Dosage: 1 MG, QD
     Dates: start: 20110501, end: 20111004
  2. PLAQUENIL [Concomitant]
     Dosage: 1 MG, QD
     Dates: start: 20110201
  3. ENBREL [Suspect]
     Indication: RHEUMATOID ARTHRITIS
     Dosage: 50 MG, QWK
     Dates: start: 20110811

REACTIONS (9)
  - VITREOUS FLOATERS [None]
  - PHOTOPHOBIA [None]
  - STOMATITIS [None]
  - PHOTOPSIA [None]
  - BACK PAIN [None]
  - VISION BLURRED [None]
  - HEADACHE [None]
  - BALANCE DISORDER [None]
  - DEVICE DISLOCATION [None]
